FAERS Safety Report 4400102-X (Version None)
Quarter: 2004Q3

REPORT INFORMATION
  Report Type: 
  Country: None (occurrence: None)
  Receive Date: 20040716
  Receipt Date: 20040630
  Transmission Date: 20050211
  Serious: No
  Sender: FDA-Public Use
  Company Number: JP_031102178

PATIENT
  Age: 57 Year
  Sex: Female
  Weight: 58 kg

DRUGS (8)
  1. GEMZAR [Suspect]
     Indication: THYMOMA
     Dosage: 1600 MG/OTHER
     Route: 050
     Dates: start: 20030903, end: 20030903
  2. FAMOTIDINE [Concomitant]
  3. SELBEX (TEPRENONE) [Concomitant]
  4. MAGNESIUM OXIDE [Concomitant]
  5. FERROMIA (FERROUS CITRATE) [Concomitant]
  6. ACETAMINOPHEN [Concomitant]
  7. SOL-MELCORT (METHYLPREDNISOLONE SODIUM SUCCINATE) [Concomitant]
  8. KYTRIL [Concomitant]

REACTIONS (1)
  - PLATELET COUNT INCREASED [None]
